FAERS Safety Report 9194541 (Version 1)
Quarter: 2013Q1

REPORT INFORMATION
  Report Type: Spontaneous
  Country: US (occurrence: US)
  Receive Date: 20130327
  Receipt Date: 20130327
  Transmission Date: 20140127
  Serious: No
  Sender: FDA-Public Use
  Company Number: US-ALLERGAN-1205217US

PATIENT
  Age: 80 Year
  Sex: Female

DRUGS (2)
  1. LATISSE 0.03% [Suspect]
     Indication: GROWTH OF EYELASHES
     Dosage: 2 GTT, QHS
     Route: 061
     Dates: start: 20120408, end: 20120410
  2. CELEBREX [Concomitant]
     Indication: PAIN

REACTIONS (4)
  - Eye irritation [Unknown]
  - Eye pruritus [Unknown]
  - Ocular discomfort [Unknown]
  - Ocular discomfort [Unknown]
